FAERS Safety Report 21530908 (Version 1)
Quarter: 2022Q4

REPORT INFORMATION
  Report Type: Spontaneous
  Country: US (occurrence: US)
  Receive Date: 20221031
  Receipt Date: 20221031
  Transmission Date: 20230112
  Serious: No
  Sender: FDA-Public Use
  Company Number: US-NOVARTISTESTPH-NVSC2022US238793

PATIENT
  Age: 53 Year
  Sex: Male
  Weight: 127.45 kg

DRUGS (9)
  1. TREPROSTINIL [Suspect]
     Active Substance: TREPROSTINIL
     Indication: Pulmonary arterial hypertension
     Dosage: UNK, CONT
     Route: 041
     Dates: start: 202209, end: 20220922
  2. TREPROSTINIL [Suspect]
     Active Substance: TREPROSTINIL
     Dosage: UNK, CONT
     Route: 041
     Dates: start: 20220922
  3. LACTULOSE [Suspect]
     Active Substance: LACTULOSE
     Indication: Liver disorder
     Dosage: UNK
     Route: 065
  4. ORENITRAM [Suspect]
     Active Substance: TREPROSTINIL
     Indication: Pulmonary arterial hypertension
     Dosage: UNK
     Route: 065
     Dates: start: 20201120
  5. ORENITRAM [Suspect]
     Active Substance: TREPROSTINIL
     Dosage: 5 MG, TID
     Route: 048
     Dates: start: 202209
  6. REMODULIN [Suspect]
     Active Substance: TREPROSTINIL
     Indication: Product used for unknown indication
     Dosage: 1.0 MILLIGRAM PER MILLILITRE
     Route: 065
     Dates: start: 20220922
  7. REMODULIN [Suspect]
     Active Substance: TREPROSTINIL
     Dosage: 0.020 ?G/KG, CONT
     Route: 041
     Dates: start: 202209
  8. OPSUMIT [Concomitant]
     Active Substance: MACITENTAN
     Indication: Product used for unknown indication
     Dosage: UNK
     Route: 065
  9. ADEMPAS [Concomitant]
     Active Substance: RIOCIGUAT
     Indication: Product used for unknown indication
     Dosage: UNK
     Route: 065

REACTIONS (10)
  - Abdominal distension [Unknown]
  - Fatigue [Unknown]
  - Diarrhoea [Unknown]
  - Catheter site pain [Unknown]
  - Asthenia [Unknown]
  - Hypophagia [Unknown]
  - Pruritus [Unknown]
  - Confusional state [Unknown]
  - Hypotension [Unknown]
  - Liver disorder [Unknown]

NARRATIVE: CASE EVENT DATE: 20220901
